FAERS Safety Report 7380845-9 (Version None)
Quarter: 2011Q1

REPORT INFORMATION
  Report Type: 
  Country: None (occurrence: None)
  Receive Date: 20110329
  Receipt Date: 20110323
  Transmission Date: 20110831
  Serious: Yes (Hospitalization)
  Sender: FDA-Public Use
  Company Number: B0707779A

PATIENT
  Sex: Male

DRUGS (7)
  1. PREVISCAN [Suspect]
     Indication: PRODUCT USED FOR UNKNOWN INDICATION
     Route: 048
     Dates: end: 20110111
  2. PARACETAMOL [Suspect]
     Indication: BRONCHITIS
     Dosage: 2G PER DAY
     Route: 042
     Dates: start: 20110106, end: 20110111
  3. SERESTA [Concomitant]
     Dosage: 5MG PER DAY
     Route: 065
  4. AUGMENTIN '125' [Suspect]
     Indication: BRONCHITIS
     Dosage: 3G PER DAY
     Route: 042
     Dates: start: 20110106, end: 20110111
  5. ACETAMINOPHEN AND TRAMADOL HCL [Concomitant]
     Dosage: 2UNIT PER DAY
     Route: 065
  6. HEMIGOXINE [Concomitant]
     Dosage: .125MG ALTERNATE DAYS
     Route: 065
  7. BACLOFEN [Concomitant]
     Dosage: 2UNIT PER DAY
     Route: 065

REACTIONS (5)
  - GASTROINTESTINAL HAEMORRHAGE [None]
  - DRUG INTERACTION [None]
  - INTERNATIONAL NORMALISED RATIO INCREASED [None]
  - PETECHIAE [None]
  - OVERDOSE [None]
